FAERS Safety Report 18534293 (Version 1)
Quarter: 2020Q4

REPORT INFORMATION
  Report Type: Other
  Country: CA (occurrence: CA)
  Receive Date: 20201123
  Receipt Date: 20201123
  Transmission Date: 20210114
  Serious: Yes (Other)
  Sender: FDA-Public Use
  Company Number: CA-APOTEX-2020AP022030

PATIENT
  Age: 6 Month

DRUGS (4)
  1. VINCRISTINE SULFATE. [Suspect]
     Active Substance: VINCRISTINE SULFATE
     Indication: RETINOBLASTOMA
     Dosage: UNK
     Route: 065
  2. ETOPOSIDE. [Suspect]
     Active Substance: ETOPOSIDE
     Indication: RETINOBLASTOMA
     Dosage: 12 MILLIGRAM/KILOGRAM
     Route: 065
  3. CYCLOSPORINE. [Suspect]
     Active Substance: CYCLOSPORINE
     Indication: PRODUCT USED FOR UNKNOWN INDICATION
     Dosage: 33 MILLIGRAM/KILOGRAM
     Route: 065
  4. CARBOPLATIN. [Suspect]
     Active Substance: CARBOPLATIN
     Indication: RETINOBLASTOMA
     Dosage: 28 MILLIGRAM/KILOGRAM
     Route: 065

REACTIONS (3)
  - Ototoxicity [Unknown]
  - Product use in unapproved indication [Unknown]
  - Off label use [Unknown]
